FAERS Safety Report 11656056 (Version 2)
Quarter: 2015Q4

REPORT INFORMATION
  Report Type: Spontaneous
  Country: US (occurrence: US)
  Receive Date: 20151023
  Receipt Date: 20151029
  Transmission Date: 20160304
  Serious: No
  Sender: FDA-Public Use
  Company Number: US-ACTELION PHARMACEUTICALS US, INC.-A-US2015-121651

PATIENT
  Age: 52 Year
  Sex: Female

DRUGS (5)
  1. TREPROSTINIL DIOLAMIN [Suspect]
     Active Substance: TREPROSTINIL DIOLAMINE
     Indication: PRODUCT USED FOR UNKNOWN INDICATION
     Route: 065
  2. REVATIO [Concomitant]
     Active Substance: SILDENAFIL CITRATE
  3. OPSUMIT [Suspect]
     Active Substance: MACITENTAN
     Indication: PULMONARY ARTERIAL HYPERTENSION
     Dosage: 10 MG, QD
     Route: 048
     Dates: start: 20140506
  4. OXYGEN. [Concomitant]
     Active Substance: OXYGEN
  5. COUMADIN [Concomitant]
     Active Substance: WARFARIN SODIUM

REACTIONS (8)
  - Dyspnoea exertional [Unknown]
  - Abdominal discomfort [Unknown]
  - Muscle spasms [Unknown]
  - Fatigue [Unknown]
  - Condition aggravated [Unknown]
  - Weight increased [Unknown]
  - Diarrhoea [Unknown]
  - Decreased activity [Unknown]
